FAERS Safety Report 16100381 (Version 1)
Quarter: 2019Q1

REPORT INFORMATION
  Report Type: Spontaneous
  Country: US (occurrence: US)
  Receive Date: 20190321
  Receipt Date: 20190321
  Transmission Date: 20190418
  Serious: Yes (Other)
  Sender: FDA-Public Use
  Company Number: US-UPSHER-SMITH LABORATORIES, LLC-2019USL00174

PATIENT
  Sex: Male
  Weight: 65.76 kg

DRUGS (9)
  1. BACLOFEN. [Suspect]
     Active Substance: BACLOFEN
     Dosage: 10 MG, 3X/DAY
     Route: 048
     Dates: start: 2018, end: 201902
  2. ATORVASTATIN (APOTEX) [Concomitant]
     Active Substance: ATORVASTATIN
     Dosage: UNK
     Dates: start: 20181204
  3. DILTIAZEM. [Concomitant]
     Active Substance: DILTIAZEM
     Dosage: UNK
     Dates: start: 20181204
  4. GABAPENTIN. [Concomitant]
     Active Substance: GABAPENTIN
     Dosage: UNK
     Dates: end: 2018
  5. BACLOFEN. [Suspect]
     Active Substance: BACLOFEN
     Dosage: 10 MG, TWICE
     Route: 048
     Dates: start: 2019, end: 2019
  6. CLOPIDOGREL (AUROBINDO) [Concomitant]
     Dosage: UNK
     Dates: start: 20181204
  7. LISINOPRIL (BLUEPOINT) [Concomitant]
     Dosage: UNK
     Dates: start: 20180318, end: 20181204
  8. KLONOPIN [Concomitant]
     Active Substance: CLONAZEPAM
     Dosage: TWO MONTHS AT A TIME
  9. BACLOFEN. [Suspect]
     Active Substance: BACLOFEN
     Indication: MUSCLE SPASMS
     Dosage: 10 MG, UP TO 2X/DAY
     Route: 048
     Dates: start: 2018, end: 2018

REACTIONS (5)
  - Arterial disorder [Recovered/Resolved]
  - Swelling [Recovered/Resolved]
  - Vascular pain [Recovered/Resolved]
  - Hypertension [Recovered/Resolved]
  - Myocardial infarction [Recovered/Resolved]

NARRATIVE: CASE EVENT DATE: 2018
